FAERS Safety Report 8153124-X (Version None)
Quarter: 2012Q1

REPORT INFORMATION
  Report Type: 
  Country: None (occurrence: None)
  Receive Date: 20120221
  Receipt Date: 20120215
  Transmission Date: 20120608
  Serious: Yes (Death)
  Sender: FDA-Public Use
  Company Number: JP-SANOFI-AVENTIS-2011SA085040

PATIENT
  Age: 74 Year
  Sex: Male
  Weight: 67 kg

DRUGS (6)
  1. TAXOTERE [Suspect]
     Indication: PROSTATE CANCER
     Dosage: FREQUENCY: 1 TIME IN 4 WEEKS; STRENGTH: 80 MG/2 MCL/V
     Route: 041
     Dates: start: 20110421, end: 20111011
  2. DEXAMETHASONE [Concomitant]
     Dosage: AFTER BREAKFAST 1MG AND AFTER DINNER 0.5MG
     Route: 048
     Dates: start: 20090303, end: 20111107
  3. ESTRACYT [Concomitant]
     Route: 048
     Dates: start: 20080120, end: 20111016
  4. FAMOTIDINE [Concomitant]
     Route: 048
     Dates: start: 20110517, end: 20111107
  5. LEUPROLIDE ACETATE [Concomitant]
     Dosage: AMPULE; FREQUENCY: EVERY 12 WEEKS
     Route: 058
     Dates: start: 20040101, end: 20111011
  6. LEUPROLIDE ACETATE [Concomitant]
     Dates: start: 20030401, end: 20040101

REACTIONS (1)
  - INTERSTITIAL LUNG DISEASE [None]
